FAERS Safety Report 9231742 (Version 1)
Quarter: 2013Q2

REPORT INFORMATION
  Report Type: Spontaneous
  Country: US (occurrence: US)
  Receive Date: 20130415
  Receipt Date: 20130415
  Transmission Date: 20140414
  Serious: Yes (Other)
  Sender: FDA-Public Use
  Company Number: US-PFIZER INC-HQWYE292507JUN04

PATIENT
  Age: 66 Year
  Sex: Female
  Weight: 46.8 kg

DRUGS (13)
  1. PREMPRO [Suspect]
     Indication: HORMONE REPLACEMENT THERAPY
  2. PREMARIN [Suspect]
     Indication: OESTROGEN REPLACEMENT THERAPY
     Dosage: 0.625 MG, UNK
  3. PROVERA [Suspect]
     Indication: HORMONE REPLACEMENT THERAPY
     Dosage: 5 MG, 1X/DAY
     Route: 048
     Dates: start: 19960204, end: 19980524
  4. PROVERA [Suspect]
     Indication: MENOPAUSE
  5. DEPO-PROVERA [Suspect]
     Indication: HORMONE REPLACEMENT THERAPY
     Dosage: UNK
     Route: 065
  6. DEPO-PROVERA [Suspect]
     Indication: MENOPAUSE
  7. CYCRIN [Suspect]
     Indication: HORMONE REPLACEMENT THERAPY
     Dosage: 5 MG, UNK
     Route: 065
  8. CYCRIN [Suspect]
     Indication: MENOPAUSE
  9. ESTRADERM [Suspect]
     Indication: HORMONE REPLACEMENT THERAPY
     Dosage: 0.5 MG, UNK
     Route: 065
     Dates: start: 19960204, end: 19990630
  10. ESTRADERM [Suspect]
     Indication: MENOPAUSE
  11. ESTRACE [Suspect]
     Dosage: UNK
     Route: 065
  12. CLIMARA [Suspect]
     Dosage: UNK
     Route: 062
  13. ESTROGEN NOS [Suspect]
     Indication: MENOPAUSE
     Dosage: UNK
     Route: 065

REACTIONS (2)
  - Breast cancer metastatic [Unknown]
  - Uterine polyp [Unknown]
